FAERS Safety Report 22590140 (Version 3)
Quarter: 2023Q4

REPORT INFORMATION
  Report Type: Report from Study
  Country: CA (occurrence: CA)
  Receive Date: 20230612
  Receipt Date: 20231129
  Transmission Date: 20240110
  Serious: Yes (Other)
  Sender: FDA-Public Use
  Company Number: CA-OTSUKA-2022_053575

PATIENT
  Sex: Male

DRUGS (4)
  1. ARIPIPRAZOLE [Suspect]
     Active Substance: ARIPIPRAZOLE
     Indication: Product used for unknown indication
     Dosage: 400 MG, (EVERY 28 DAYS/ EVERY 4 WEEKS)
     Route: 030
  2. ARIPIPRAZOLE [Suspect]
     Active Substance: ARIPIPRAZOLE
     Dosage: 400 MG, (EVERY 4 WEEKS)
     Route: 030
     Dates: start: 20230110
  3. ARIPIPRAZOLE [Suspect]
     Active Substance: ARIPIPRAZOLE
     Dosage: 400 MG, EVERY 21 DAYS
     Route: 030
     Dates: start: 20230331
  4. ARIPIPRAZOLE [Suspect]
     Active Substance: ARIPIPRAZOLE
     Dosage: 400 MG, EVERY 21 DAYS
     Route: 030

REACTIONS (14)
  - Concussion [Unknown]
  - Syncope [Unknown]
  - Frustration tolerance decreased [Unknown]
  - Neglect of personal appearance [Unknown]
  - Oral candidiasis [Unknown]
  - Dental caries [Not Recovered/Not Resolved]
  - Toothache [Not Recovered/Not Resolved]
  - Palpitations [Unknown]
  - Irritability [Not Recovered/Not Resolved]
  - Acne [Not Recovered/Not Resolved]
  - Muscle twitching [Unknown]
  - Physical assault [Unknown]
  - Poor personal hygiene [Not Recovered/Not Resolved]
  - Inappropriate schedule of product administration [Unknown]
